FAERS Safety Report 11154603 (Version 1)
Quarter: 2015Q2

REPORT INFORMATION
  Report Type: Spontaneous
  Country: US (occurrence: US)
  Receive Date: 20150602
  Receipt Date: 20150602
  Transmission Date: 20150821
  Serious: No
  Sender: FDA-Public Use
  Company Number: US-NOVEN PHARMACEUTICALS, INC.-US2015000052

PATIENT
  Age: 9 Year
  Sex: Male

DRUGS (3)
  1. DAYTRANA [Suspect]
     Active Substance: METHYLPHENIDATE
     Indication: ATTENTION DEFICIT/HYPERACTIVITY DISORDER
     Dosage: 10 MG, UNK, AFTER THIS SWITCHED IT TO SOME OTHER MEDICATION FOR ADHD
     Route: 062
     Dates: start: 201402, end: 2014
  2. DAYTRANA [Suspect]
     Active Substance: METHYLPHENIDATE
     Dosage: 10 MG, UNK, SWITCHED BACK TO FULL PATCH OF 10 MG
     Route: 062
     Dates: start: 20150310
  3. DAYTRANA [Suspect]
     Active Substance: METHYLPHENIDATE
     Dosage: SWITCHED BACK TO DAYTRANA, PATCHES WERE CUT IN HALF, AS RECOMENDED BY HIS NEUROLOGIST,
     Route: 062
     Dates: end: 2015

REACTIONS (8)
  - Somnolence [Recovered/Resolved]
  - Drug prescribing error [Unknown]
  - Product quality issue [Unknown]
  - Weight increased [Unknown]
  - Fatigue [Recovered/Resolved]
  - Therapeutic response unexpected [Unknown]
  - Drug dose omission [Unknown]
  - Decreased appetite [Recovered/Resolved]

NARRATIVE: CASE EVENT DATE: 2014
